FAERS Safety Report 16617328 (Version 1)
Quarter: 2019Q3

REPORT INFORMATION
  Report Type: Spontaneous
  Country: PT (occurrence: PT)
  Receive Date: 20190723
  Receipt Date: 20190723
  Transmission Date: 20191004
  Serious: Yes (Other)
  Sender: FDA-Public Use
  Company Number: PT-MYLANLABS-2019M1067976

PATIENT
  Age: 60 Year
  Sex: Female

DRUGS (8)
  1. TRAMADOL. [Suspect]
     Active Substance: TRAMADOL
     Indication: THROMBOANGIITIS OBLITERANS
     Route: 065
  2. ILOPROST. [Suspect]
     Active Substance: ILOPROST
     Indication: THROMBOANGIITIS OBLITERANS
     Route: 050
  3. PREGABALIN. [Suspect]
     Active Substance: PREGABALIN
     Indication: THROMBOANGIITIS OBLITERANS
     Route: 048
  4. BUPRENORPHINE. [Suspect]
     Active Substance: BUPRENORPHINE
     Indication: THROMBOANGIITIS OBLITERANS
     Dosage: 17.5 MCG/H ONCE A DAY
     Route: 062
  5. PARACETAMOL [Suspect]
     Active Substance: ACETAMINOPHEN
     Indication: THROMBOANGIITIS OBLITERANS
     Route: 065
  6. PREGABALIN. [Suspect]
     Active Substance: PREGABALIN
     Dosage: THE DOSE OF PREGABALIN WAS TITRATED TO 50 MG
     Route: 048
  7. BUPRENORPHINE. [Suspect]
     Active Substance: BUPRENORPHINE
     Dosage: 35 MCG/H ONCE A DAY
     Route: 062
  8. ACETYLSALICYLIC ACID [Suspect]
     Active Substance: ASPIRIN
     Indication: THROMBOANGIITIS OBLITERANS
     Route: 065

REACTIONS (1)
  - Drug ineffective [Unknown]
